FAERS Safety Report 5432057-3 (Version None)
Quarter: 2007Q3

REPORT INFORMATION
  Report Type: 
  Country: None (occurrence: None)
  Receive Date: 20070830
  Receipt Date: 20070827
  Transmission Date: 20080115
  Serious: Yes (Hospitalization)
  Sender: FDA-Public Use
  Company Number: US-BOEHRINGER INGELHEIM PHARMACEUTICALS, INC.-2007-BP-19908BP

PATIENT
  Sex: Female

DRUGS (8)
  1. ZANTAC 150 [Suspect]
     Indication: DYSPEPSIA
     Route: 048
  2. ZANTAC 150 [Suspect]
  3. ENALAPRIL [Concomitant]
     Indication: HYPERTENSION
  4. METOPROLOL SUCCINATE [Concomitant]
     Indication: HYPERTENSION
  5. LIPITOR [Concomitant]
     Indication: BLOOD CHOLESTEROL INCREASED
  6. ASPIRIN [Concomitant]
     Indication: CARDIAC DISORDER
  7. AMIODARONE [Concomitant]
  8. LEVOXYL [Concomitant]

REACTIONS (5)
  - ACCIDENT AT HOME [None]
  - FALL [None]
  - HEAD INJURY [None]
  - HYPERHIDROSIS [None]
  - SPINAL FRACTURE [None]
